FAERS Safety Report 7593499-3 (Version None)
Quarter: 2011Q3

REPORT INFORMATION
  Report Type: 
  Country: None (occurrence: None)
  Receive Date: 20110706
  Receipt Date: 20110627
  Transmission Date: 20111222
  Serious: Yes (Hospitalization, Other)
  Sender: FDA-Public Use
  Company Number: US-BAYER-201022288NA

PATIENT
  Age: 26 Year
  Sex: Female
  Weight: 113.38 kg

DRUGS (7)
  1. ZITHROMAX [Concomitant]
     Dosage: UNK
     Dates: start: 20050101
  2. SYNTHROID [Concomitant]
     Indication: THYROID DISORDER
     Dosage: UNK
     Dates: start: 20000101
  3. YAZ [Suspect]
     Indication: POLYCYSTIC OVARIES
     Dosage: UNK UNK, QD
     Route: 048
     Dates: start: 20010101, end: 20081201
  4. YASMIN [Suspect]
     Indication: POLYCYSTIC OVARIES
     Route: 048
     Dates: start: 20010101, end: 20081015
  5. PROCARDIA [Concomitant]
     Indication: HEART RATE IRREGULAR
     Dosage: UNK
     Dates: start: 20000101, end: 20050101
  6. GLUCOPHAGE [Concomitant]
     Indication: INSULIN RESISTANCE
     Dosage: UNK
     Dates: start: 20010101
  7. IBUPROFEN [Concomitant]
     Dosage: UNK UNK, PRN

REACTIONS (7)
  - GALLBLADDER DISORDER [None]
  - ABDOMINAL PAIN UPPER [None]
  - BILIARY DYSKINESIA [None]
  - CHOLECYSTITIS [None]
  - CHOLELITHIASIS [None]
  - ABDOMINAL PAIN [None]
  - CHOLECYSTITIS CHRONIC [None]
